FAERS Safety Report 20203300 (Version 1)
Quarter: 2021Q4

REPORT INFORMATION
  Report Type: Spontaneous
  Country: KR (occurrence: KR)
  Receive Date: 20211218
  Receipt Date: 20211218
  Transmission Date: 20220304
  Serious: Yes (Other)
  Sender: FDA-Public Use
  Company Number: KR-009507513-2112KOR006448

PATIENT
  Sex: Male
  Weight: 74.2 kg

DRUGS (8)
  1. PREVYMIS [Suspect]
     Active Substance: LETERMOVIR
     Indication: Antiviral prophylaxis
     Dosage: UNK UNK, QD
     Route: 048
     Dates: start: 20201007, end: 20201110
  2. ZOYLEX [ACICLOVIR] [Concomitant]
     Indication: Herpes zoster disseminated
     Dosage: 500 MILLIGRAM, TID
     Dates: start: 20201026
  3. AMLODIPINE OROTATE [Concomitant]
     Active Substance: AMLODIPINE OROTATE
     Indication: Hypertension
     Dosage: 1 TABLET, QD
     Route: 048
     Dates: start: 20211026
  4. Q PAM [LEVETIRACETAM] [Concomitant]
     Indication: Seizure
     Dosage: 2000 MILLIGRAM, QD
     Route: 042
     Dates: start: 20201107
  5. MYCOPHENOLATE MOFETIL [Concomitant]
     Active Substance: MYCOPHENOLATE MOFETIL
     Indication: Prophylaxis against graft versus host disease
     Dosage: 1 BOTTLE, BID
     Route: 048
     Dates: start: 20201026
  6. ALDACTONE [Concomitant]
     Active Substance: SPIRONOLACTONE
     Indication: Hypertension
     Dosage: 1 DOSAGE FORM, QD
     Route: 048
     Dates: start: 20201028
  7. VFEND [Concomitant]
     Active Substance: VORICONAZOLE
     Indication: Bronchopulmonary aspergillosis
     Dosage: 200 MILLIGRAM, BID
     Route: 042
     Dates: start: 20201007
  8. SULFAMETHOXAZOLE\TRIMETHOPRIM [Concomitant]
     Active Substance: SULFAMETHOXAZOLE\TRIMETHOPRIM
     Indication: Infection prophylaxis
     Dosage: 1 TABLET (400 MG + 80 MG), QD
     Route: 048
     Dates: start: 20200816

REACTIONS (2)
  - Cytomegalovirus colitis [Unknown]
  - Drug ineffective [Unknown]

NARRATIVE: CASE EVENT DATE: 20210111
